FAERS Safety Report 17397005 (Version 4)
Quarter: 2020Q3

REPORT INFORMATION
  Report Type: Spontaneous
  Country: US (occurrence: US)
  Receive Date: 20200210
  Receipt Date: 20200923
  Transmission Date: 20201102
  Serious: Yes (Death)
  Sender: FDA-Public Use
  Company Number: US-ALKERMES INC.-ALK-2020-000538

PATIENT
  Age: 26 Year
  Sex: Male

DRUGS (21)
  1. SUBOXONE [Suspect]
     Active Substance: BUPRENORPHINE HYDROCHLORIDE\NALOXONE HYDROCHLORIDE
     Indication: PRODUCT USED FOR UNKNOWN INDICATION
     Dosage: 1 MILLIGRAM, BID X DAILY
     Route: 048
     Dates: start: 201707, end: 20170723
  2. SUBOXONE [Suspect]
     Active Substance: BUPRENORPHINE HYDROCHLORIDE\NALOXONE HYDROCHLORIDE
     Dosage: 4 MILLIGRAM, ONE TIME DOSE
     Route: 048
     Dates: start: 20170719, end: 20170719
  3. VIVITROL [Suspect]
     Active Substance: NALTREXONE
     Indication: DRUG DEPENDENCE
     Dosage: 380 MG, QMO
     Route: 030
     Dates: start: 20170726
  4. PROZAC [Concomitant]
     Active Substance: FLUOXETINE HYDROCHLORIDE
     Indication: DYSPHORIA
     Dosage: 40 MILLIGRAM, QD
     Route: 048
     Dates: start: 20170808
  5. PROZAC [Concomitant]
     Active Substance: FLUOXETINE HYDROCHLORIDE
     Dosage: UNK
  6. WELLBUTRIN [Concomitant]
     Active Substance: BUPROPION HYDROCHLORIDE
     Indication: BODY DYSMORPHIC DISORDER
     Dosage: UNK
     Route: 065
  7. SUBOXONE [Suspect]
     Active Substance: BUPRENORPHINE HYDROCHLORIDE\NALOXONE HYDROCHLORIDE
     Dosage: 6 MILLIGRAM, BID
     Route: 048
     Dates: start: 201707, end: 201707
  8. NALTREXONE [Concomitant]
     Active Substance: NALTREXONE
     Indication: PROPHYLAXIS
     Dosage: 50 MILLIGRAM, ONE TIME DOSE
     Route: 048
     Dates: start: 20200731, end: 20200731
  9. PROZAC [Concomitant]
     Active Substance: FLUOXETINE HYDROCHLORIDE
     Indication: BODY DYSMORPHIC DISORDER
     Dosage: 3 DOSAGE FORM, QAM
     Route: 048
     Dates: start: 20170822
  10. PROZAC [Concomitant]
     Active Substance: FLUOXETINE HYDROCHLORIDE
     Dosage: 3 DOSAGE FORM, QAM
     Route: 048
     Dates: start: 20170711
  11. VIVITROL [Suspect]
     Active Substance: NALTREXONE
     Dosage: 380 MG, QMO
     Route: 030
     Dates: start: 2017, end: 2017
  12. VIVITROL [Suspect]
     Active Substance: NALTREXONE
     Dosage: 380 MG, QMO
     Route: 030
     Dates: start: 201602, end: 201602
  13. SUBOXONE [Suspect]
     Active Substance: BUPRENORPHINE HYDROCHLORIDE\NALOXONE HYDROCHLORIDE
     Dosage: 3 MILLIGRAM, BID X 1 DAY
     Route: 048
     Dates: start: 201707, end: 201707
  14. SUBOXONE [Suspect]
     Active Substance: BUPRENORPHINE HYDROCHLORIDE\NALOXONE HYDROCHLORIDE
     Dosage: 2 MILLIGRAM, BID X 2 DAY
     Route: 048
     Dates: start: 201707, end: 201707
  15. OTHER THERAPEUTIC PRODUCTS [Concomitant]
     Active Substance: UNSPECIFIED INGREDIENT
     Indication: PRODUCT USED FOR UNKNOWN INDICATION
     Dosage: UNK
     Route: 065
  16. SUBOXONE [Suspect]
     Active Substance: BUPRENORPHINE HYDROCHLORIDE\NALOXONE HYDROCHLORIDE
     Dosage: 4 MILLIGRAM, BID X 1 DAY
     Route: 048
     Dates: start: 201707, end: 201707
  17. SUBOXONE [Suspect]
     Active Substance: BUPRENORPHINE HYDROCHLORIDE\NALOXONE HYDROCHLORIDE
     Dosage: UNK
     Route: 048
     Dates: start: 201707, end: 201707
  18. PROZAC [Concomitant]
     Active Substance: FLUOXETINE HYDROCHLORIDE
     Dosage: 20 MILLIGRAM, QD
     Route: 048
     Dates: start: 20170731
  19. LEXAPRO [Concomitant]
     Active Substance: ESCITALOPRAM OXALATE
     Indication: BODY DYSMORPHIC DISORDER
     Dosage: UNK
     Route: 065
  20. SUBOXONE [Suspect]
     Active Substance: BUPRENORPHINE HYDROCHLORIDE\NALOXONE HYDROCHLORIDE
     Dosage: 6 MILLIGRAM, QAM
     Route: 048
     Dates: start: 20170719, end: 20170719
  21. EFFEXOR [Concomitant]
     Active Substance: VENLAFAXINE HYDROCHLORIDE
     Indication: BODY DYSMORPHIC DISORDER
     Dosage: UNK
     Route: 065

REACTIONS (47)
  - Overdose [Fatal]
  - Memory impairment [Recovered/Resolved]
  - Dysphoria [Unknown]
  - Malaise [Unknown]
  - Disturbance in attention [Recovered/Resolved]
  - Constipation [Unknown]
  - Hepatitis C [Recovered/Resolved]
  - Speech disorder [Recovered/Resolved]
  - Dysphonia [Recovered/Resolved]
  - Self esteem decreased [Unknown]
  - Psychomotor hyperactivity [Recovered/Resolved]
  - Product dose omission issue [Not Recovered/Not Resolved]
  - Insomnia [Unknown]
  - Judgement impaired [Recovered/Resolved]
  - Bradykinesia [Unknown]
  - Blunted affect [Recovered/Resolved]
  - Loss of personal independence in daily activities [Unknown]
  - Gastrointestinal disorder [Unknown]
  - Hallucination, auditory [Unknown]
  - Nausea [Recovered/Resolved]
  - Thinking abnormal [Recovered/Resolved]
  - Pain [Recovered/Resolved]
  - Social avoidant behaviour [Recovered/Resolved]
  - Withdrawal syndrome [Recovered/Resolved]
  - Appetite disorder [Unknown]
  - Self-injurious ideation [Unknown]
  - Stress [Unknown]
  - Decreased interest [Unknown]
  - Drug dependence [Not Recovered/Not Resolved]
  - Lethargy [Unknown]
  - Family stress [Unknown]
  - Feeling guilty [Unknown]
  - Mood altered [Unknown]
  - Abdominal pain [Not Recovered/Not Resolved]
  - Dizziness [Recovered/Resolved]
  - Depressed mood [Not Recovered/Not Resolved]
  - Somnolence [Recovered/Resolved]
  - Feeling of despair [Unknown]
  - Asthenia [Recovered/Resolved]
  - Agitation [Recovered/Resolved]
  - Toothache [Unknown]
  - Morbid thoughts [Unknown]
  - Anhedonia [Unknown]
  - Depression [Not Recovered/Not Resolved]
  - Anxiety [Not Recovered/Not Resolved]
  - Back pain [Unknown]
  - Fatigue [Unknown]

NARRATIVE: CASE EVENT DATE: 2016
